FAERS Safety Report 10101441 (Version 1)
Quarter: 2014Q2

REPORT INFORMATION
  Report Type: Spontaneous
  Country: US (occurrence: US)
  Receive Date: 20140424
  Receipt Date: 20140424
  Transmission Date: 20141212
  Serious: Yes (Hospitalization, Other)
  Sender: FDA-Public Use
  Company Number: US-AMGEN-USASP2014028586

PATIENT
  Age: 86 Year
  Sex: Female

DRUGS (4)
  1. PROLIA [Suspect]
     Indication: OSTEOPOROSIS POSTMENOPAUSAL
     Dosage: UNK
     Route: 065
  2. GABAPENTIN [Concomitant]
     Indication: JOINT SWELLING
  3. LASIX                              /00032601/ [Concomitant]
     Indication: JOINT SWELLING
  4. MELOXICAM [Concomitant]
     Indication: ARTHRITIS

REACTIONS (5)
  - Urinary tract infection [Unknown]
  - Upper limb fracture [Unknown]
  - Fall [Unknown]
  - Gastrointestinal infection [Unknown]
  - Back pain [Unknown]
